FAERS Safety Report 21805869 (Version 3)
Quarter: 2023Q2

REPORT INFORMATION
  Report Type: Report from Study
  Country: CA (occurrence: CA)
  Receive Date: 20230102
  Receipt Date: 20230405
  Transmission Date: 20230722
  Serious: Yes (Hospitalization, Other)
  Sender: FDA-Public Use
  Company Number: CA-TAKEDA-2021TUS064698

PATIENT
  Age: 74 Year
  Sex: Female
  Weight: 60 kg

DRUGS (26)
  1. HUMAN IMMUNOGLOBULIN G [Suspect]
     Active Substance: HUMAN IMMUNOGLOBULIN G
     Indication: Chronic inflammatory demyelinating polyradiculoneuropathy
     Dosage: 15 GRAM, 1/WEEK
     Route: 065
     Dates: start: 20211018
  2. HUMAN IMMUNOGLOBULIN G [Suspect]
     Active Substance: HUMAN IMMUNOGLOBULIN G
     Dosage: 15 GRAM, 1/WEEK
     Route: 065
     Dates: start: 20211018
  3. HUMAN IMMUNOGLOBULIN G [Suspect]
     Active Substance: HUMAN IMMUNOGLOBULIN G
     Dosage: 30 GRAM, 1/WEEK
     Route: 058
     Dates: start: 20211018
  4. HUMAN IMMUNOGLOBULIN G [Suspect]
     Active Substance: HUMAN IMMUNOGLOBULIN G
     Dosage: UNK
     Route: 050
     Dates: start: 20211018
  5. HUMAN IMMUNOGLOBULIN G [Suspect]
     Active Substance: HUMAN IMMUNOGLOBULIN G
     Dosage: 15 GRAM, 1/WEEK
     Route: 058
     Dates: start: 202111
  6. HUMAN IMMUNOGLOBULIN G [Suspect]
     Active Substance: HUMAN IMMUNOGLOBULIN G
     Dosage: 15 GRAM, 2/WEEK
     Route: 058
     Dates: start: 202111
  7. HUMAN IMMUNOGLOBULIN G [Suspect]
     Active Substance: HUMAN IMMUNOGLOBULIN G
     Dosage: 1 GRAM
     Route: 065
  8. HUMAN IMMUNOGLOBULIN G [Suspect]
     Active Substance: HUMAN IMMUNOGLOBULIN G
     Dosage: 4 GRAM
     Route: 065
  9. HUMAN IMMUNOGLOBULIN G [Suspect]
     Active Substance: HUMAN IMMUNOGLOBULIN G
     Dosage: 10 GRAM
     Route: 065
  10. RAMIPRIL [Concomitant]
     Active Substance: RAMIPRIL
     Dosage: 2.5 MILLIGRAM, QD
     Route: 065
  11. METFORMIN [Concomitant]
     Active Substance: METFORMIN HYDROCHLORIDE
     Dosage: 500 MILLIGRAM, BID
     Route: 065
  12. METFORMIN [Concomitant]
     Active Substance: METFORMIN HYDROCHLORIDE
     Dosage: 2 DOSAGE FORM, QD
     Route: 065
  13. GLICLAZIDE [Concomitant]
     Active Substance: GLICLAZIDE
     Dosage: 30 MILLIGRAM
     Route: 065
  14. HYDROXYCHLOROQUINE [Concomitant]
     Active Substance: HYDROXYCHLOROQUINE
     Dosage: 200 MILLIGRAM, BID
     Route: 065
  15. HYDROXYCHLOROQUINE [Concomitant]
     Active Substance: HYDROXYCHLOROQUINE
     Dosage: 400 MILLIGRAM, QD
     Route: 048
  16. RABEPRAZOLE [Concomitant]
     Active Substance: RABEPRAZOLE
     Dosage: 20 MILLIGRAM, QD
     Route: 065
  17. CALCIUM\MAGNESIUM [Concomitant]
     Active Substance: CALCIUM\MAGNESIUM
     Dosage: UNK, QD
     Route: 065
  18. CANNABIS SATIVA SUBSP. INDICA TOP [Concomitant]
     Active Substance: CANNABIS SATIVA SUBSP. INDICA TOP
     Indication: Neuropathy peripheral
     Dosage: UNK
     Route: 065
  19. VITAMIN D3 [Concomitant]
     Active Substance: CHOLECALCIFEROL
     Indication: Neuropathy peripheral
     Dosage: 4000 INTERNATIONAL UNIT
     Route: 065
  20. VITAMIN D3 [Concomitant]
     Active Substance: CHOLECALCIFEROL
     Dosage: 3000 INTERNATIONAL UNIT, QD
     Route: 065
  21. ALPHA LIPOIC ACID [Concomitant]
     Active Substance: .ALPHA.-LIPOIC ACID
     Indication: Guillain-Barre syndrome
     Dosage: 2 DOSAGE FORM, QD
     Route: 065
  22. VITAMIN B12 [Concomitant]
     Active Substance: CYANOCOBALAMIN
     Dosage: 1000 MICROGRAM, QD
     Route: 048
  23. CANNABIS SATIVA SUBSP. INDICA TOP [Concomitant]
     Active Substance: CANNABIS SATIVA SUBSP. INDICA TOP
     Indication: Neuropathy peripheral
     Dosage: 4 DOSAGE FORM, QD
     Route: 065
  24. SOLFENACIN [Concomitant]
     Dosage: UNK
     Route: 065
  25. TYLENOL [Concomitant]
     Active Substance: ACETAMINOPHEN
     Dosage: UNK
  26. CALCIUM\MAGNESIUM\ZINC [Concomitant]
     Active Substance: CALCIUM\MAGNESIUM\ZINC
     Dosage: UNK

REACTIONS (19)
  - Sjogren^s syndrome [Unknown]
  - Cerebrovascular accident [Unknown]
  - Angiopathy [Unknown]
  - Serum ferritin increased [Unknown]
  - Urinary incontinence [Unknown]
  - Eye contusion [Not Recovered/Not Resolved]
  - Gait inability [Unknown]
  - Balance disorder [Not Recovered/Not Resolved]
  - Diarrhoea [Unknown]
  - Back pain [Not Recovered/Not Resolved]
  - Pain in extremity [Unknown]
  - Rib fracture [Not Recovered/Not Resolved]
  - Disturbance in attention [Unknown]
  - Memory impairment [Not Recovered/Not Resolved]
  - Fall [Not Recovered/Not Resolved]
  - Eye oedema [Not Recovered/Not Resolved]
  - Contusion [Not Recovered/Not Resolved]
  - Asthenia [Not Recovered/Not Resolved]
  - Off label use [Unknown]

NARRATIVE: CASE EVENT DATE: 20211018
